FAERS Safety Report 6202058-6 (Version None)
Quarter: 2009Q2

REPORT INFORMATION
  Report Type: 
  Country: None (occurrence: None)
  Receive Date: 20090526
  Receipt Date: 20090520
  Transmission Date: 20091009
  Serious: Yes (Hospitalization)
  Sender: FDA-Public Use
  Company Number: B0574942A

PATIENT
  Sex: Male

DRUGS (3)
  1. AUGMENTIN '125' [Suspect]
     Indication: ERYSIPELAS
     Dosage: 1UNIT THREE TIMES PER DAY
     Route: 048
     Dates: start: 20081023, end: 20081023
  2. AMOXICILLIN [Suspect]
     Indication: DRUG USE FOR UNKNOWN INDICATION
     Route: 048
     Dates: start: 20081025, end: 20081102
  3. ROCEPHIN [Suspect]
     Indication: ERYSIPELAS
     Dosage: 1UNIT SINGLE DOSE
     Route: 042
     Dates: start: 20081024, end: 20081024

REACTIONS (9)
  - DRUG ERUPTION [None]
  - ECCHYMOSIS [None]
  - INFLAMMATION [None]
  - OEDEMA PERIPHERAL [None]
  - PROTEINURIA [None]
  - PRURITUS [None]
  - PYREXIA [None]
  - SERUM SICKNESS [None]
  - URTICARIA [None]
